FAERS Safety Report 11174736 (Version 2)
Quarter: 2015Q2

REPORT INFORMATION
  Report Type: Report from Study
  Country: BR (occurrence: BR)
  Receive Date: 20150609
  Receipt Date: 20150622
  Transmission Date: 20150821
  Serious: Yes (Hospitalization, Other)
  Sender: FDA-Public Use
  Company Number: BR-ROCHE-1587544

PATIENT
  Age: 43 Year
  Sex: Female

DRUGS (12)
  1. TRASTUZUMAB [Suspect]
     Active Substance: TRASTUZUMAB
     Indication: BREAST CANCER
     Route: 065
  2. DOXORUBICIN [Suspect]
     Active Substance: DOXORUBICIN
     Indication: BREAST CANCER
     Route: 065
     Dates: start: 201006, end: 201109
  3. LAPATINIB [Suspect]
     Active Substance: LAPATINIB
     Indication: RECURRENT CANCER
     Route: 065
     Dates: start: 201201
  4. TRASTUZUMAB [Suspect]
     Active Substance: TRASTUZUMAB
     Route: 065
     Dates: start: 201207
  5. TRASTUZUMAB [Suspect]
     Active Substance: TRASTUZUMAB
     Route: 065
     Dates: start: 201301
  6. NAVELBINE [Suspect]
     Active Substance: VINORELBINE TARTRATE
     Dosage: ON DAY 1 AND DAY 8.
     Route: 065
     Dates: start: 201301
  7. CAPECITABINE. [Suspect]
     Active Substance: CAPECITABINE
     Indication: RECURRENT CANCER
     Route: 065
     Dates: start: 201201
  8. NAVELBINE [Suspect]
     Active Substance: VINORELBINE TARTRATE
     Indication: RECURRENT CANCER
     Route: 065
     Dates: start: 201202
  9. TRASTUZUMAB EMTANSINE [Suspect]
     Active Substance: ADO-TRASTUZUMAB EMTANSINE
     Indication: BREAST CANCER METASTATIC
     Route: 065
     Dates: start: 201309
  10. TRASTUZUMAB [Suspect]
     Active Substance: TRASTUZUMAB
     Route: 065
     Dates: start: 201202
  11. CYCLOPHOSPHAMIDE. [Suspect]
     Active Substance: CYCLOPHOSPHAMIDE
     Indication: BREAST CANCER
     Route: 065
     Dates: start: 201006, end: 201109
  12. DOCETAXEL. [Suspect]
     Active Substance: DOCETAXEL
     Indication: BREAST CANCER
     Route: 065

REACTIONS (8)
  - Constipation [Unknown]
  - Fatigue [Unknown]
  - Colitis [Recovered/Resolved]
  - Hypometabolism [Unknown]
  - Drug-induced liver injury [Recovered/Resolved]
  - Telangiectasia [Unknown]
  - Dry mouth [Unknown]
  - Metastatic neoplasm [Unknown]

NARRATIVE: CASE EVENT DATE: 201201
